FAERS Safety Report 7920000-4 (Version None)
Quarter: 2011Q4

REPORT INFORMATION
  Report Type: 
  Country: None (occurrence: None)
  Receive Date: 20111117
  Receipt Date: 20111115
  Transmission Date: 20120403
  Serious: Yes (Hospitalization)
  Sender: FDA-Public Use
  Company Number: CN-BRISTOL-MYERS SQUIBB COMPANY-16206062

PATIENT
  Age: 57 Year
  Sex: Male
  Weight: 69 kg

DRUGS (2)
  1. ETOPOSIDE [Suspect]
     Indication: NON-SMALL CELL LUNG CANCER STAGE III
     Dosage: DAYS1-5 PRIOR TO EVENT:15AUG11.
     Route: 065
     Dates: start: 20110718, end: 20110101
  2. CISPLATIN [Suspect]
     Indication: NON-SMALL CELL LUNG CANCER STAGE III
     Dosage: DAYS1-8 PRIOR TO EVENT:15AUG11.
     Route: 065
     Dates: start: 20110718, end: 20110819

REACTIONS (1)
  - CEREBRAL INFARCTION [None]
